FAERS Safety Report 9104618 (Version 7)
Quarter: 2014Q1

REPORT INFORMATION
  Report Type: Spontaneous
  Country: US (occurrence: US)
  Receive Date: 20130220
  Receipt Date: 20140214
  Transmission Date: 20141002
  Serious: No
  Sender: FDA-Public Use
  Company Number: US-PFIZER INC-2013062778

PATIENT
  Age: 62 Year
  Sex: Male
  Weight: 181 kg

DRUGS (1)
  1. NEURONTIN [Suspect]
     Dosage: UNK

REACTIONS (9)
  - Malaise [Unknown]
  - Neuropathy peripheral [Unknown]
  - Paraesthesia [Unknown]
  - Neuralgia [Unknown]
  - Drug effect incomplete [Unknown]
  - Drug ineffective [Unknown]
  - Alcoholism [Unknown]
  - Carpal tunnel syndrome [Unknown]
  - Sciatica [Unknown]
